FAERS Safety Report 7631400-4 (Version None)
Quarter: 2011Q3

REPORT INFORMATION
  Report Type: 
  Country: None (occurrence: None)
  Receive Date: 20110725
  Receipt Date: 20110713
  Transmission Date: 20111222
  Serious: Yes (Other)
  Sender: FDA-Public Use
  Company Number: US-JNJFOC-20110706519

PATIENT
  Sex: Female

DRUGS (1)
  1. REMICADE [Suspect]
     Indication: RHEUMATOID ARTHRITIS
     Dosage: HAS BEEN ON REMICADE FOR ABOUT 3 1/2 YEARS
     Route: 042
     Dates: start: 20080101, end: 20110501

REACTIONS (2)
  - ULNAR NERVE INJURY [None]
  - KIDNEY INFECTION [None]
